FAERS Safety Report 16377328 (Version 1)
Quarter: 2019Q2

REPORT INFORMATION
  Report Type: Spontaneous
  Country: IT (occurrence: IT)
  Receive Date: 20190531
  Receipt Date: 20190531
  Transmission Date: 20190711
  Serious: Yes (Other)
  Sender: FDA-Public Use
  Company Number: IT-AMGEN-ITASP2019085876

PATIENT
  Age: 82 Year
  Sex: Female
  Weight: 59 kg

DRUGS (7)
  1. IRINOTECAN HYDROCHLORIDE TRIHYDRATE [IRINOTECAN HYDROCHLORIDE] [Suspect]
     Active Substance: IRINOTECAN HYDROCHLORIDE
     Indication: COLON CANCER
     Dosage: 233.3 MILLIGRAM, CYCLICAL
     Route: 042
     Dates: start: 20180824, end: 20190502
  2. PANITUMUMAB [Suspect]
     Active Substance: PANITUMUMAB
     Indication: COLON CANCER
     Dosage: 283.2 MILLIGRAM, CYCLICAL
     Route: 042
     Dates: start: 20180824, end: 20190502
  3. FLUOROURACIL. [Suspect]
     Active Substance: FLUOROURACIL
     Indication: COLON CANCER
     Dosage: 3110 MILLIGRAM, CYCLICAL
     Route: 042
     Dates: start: 20180824, end: 20190502
  4. ATROPINE. [Concomitant]
     Active Substance: ATROPINE
     Dosage: UNK
  5. FLUOROURACIL. [Suspect]
     Active Substance: FLUOROURACIL
     Dosage: 518.4 MILLIGRAM, CYCLICAL
     Route: 040
     Dates: start: 20180824, end: 20190502
  6. DEXAMETHASONE. [Concomitant]
     Active Substance: DEXAMETHASONE
     Dosage: UNK
  7. RANITIDINE HYDROCHLORIDE. [Concomitant]
     Active Substance: RANITIDINE HYDROCHLORIDE
     Dosage: UNK

REACTIONS (1)
  - Neutropenia [Recovering/Resolving]

NARRATIVE: CASE EVENT DATE: 20190515
